FAERS Safety Report 14911479 (Version 1)
Quarter: 2018Q2

REPORT INFORMATION
  Report Type: Spontaneous
  Country: DE (occurrence: DE)
  Receive Date: 20180518
  Receipt Date: 20180518
  Transmission Date: 20180711
  Serious: Yes (Other)
  Sender: FDA-Public Use
  Company Number: DE-009507513-1805DEU005750

PATIENT
  Sex: Male

DRUGS (1)
  1. REMERGIL [Suspect]
     Active Substance: MIRTAZAPINE
     Indication: DEPRESSION
     Dosage: UNK

REACTIONS (6)
  - Sjogren^s syndrome [Unknown]
  - Crohn^s disease [Unknown]
  - Weight increased [Unknown]
  - Mucosal dryness [Unknown]
  - Epistaxis [Unknown]
  - Dry mouth [Unknown]
